FAERS Safety Report 13677203 (Version 2)
Quarter: 2017Q4

REPORT INFORMATION
  Report Type: Report from Study
  Country: US (occurrence: US)
  Receive Date: 20170622
  Receipt Date: 20171003
  Transmission Date: 20180320
  Serious: Yes (Hospitalization, Other)
  Sender: FDA-Public Use
  Company Number: PHEH2017US017992

PATIENT
  Sex: Male

DRUGS (2)
  1. VITAMIN E [Concomitant]
     Active Substance: .ALPHA.-TOCOPHEROL
     Indication: PRODUCT USED FOR UNKNOWN INDICATION
     Dosage: UNK UNK, BID
     Route: 065
  2. PROMACTA [Suspect]
     Active Substance: ELTROMBOPAG OLAMINE
     Indication: PRODUCT USED FOR UNKNOWN INDICATION
     Route: 065

REACTIONS (11)
  - Liver disorder [Unknown]
  - Kidney infection [Unknown]
  - Osteomyelitis [Unknown]
  - Renal failure [Unknown]
  - Skin ulcer [Unknown]
  - Pneumonia [Unknown]
  - General physical health deterioration [Unknown]
  - Seizure [Unknown]
  - Localised infection [Unknown]
  - Tendon rupture [Unknown]
  - Platelet count decreased [Unknown]
